FAERS Safety Report 24267724 (Version 1)
Quarter: 2024Q3

REPORT INFORMATION
  Report Type: Spontaneous
  Country: US (occurrence: None)
  Receive Date: 20240829
  Receipt Date: 20240829
  Transmission Date: 20241016
  Serious: Yes (Other)
  Sender: Public
  Company Number: None

PATIENT
  Age: 63 Year
  Sex: Female
  Weight: 67.6 kg

DRUGS (2)
  1. ZOLEDRONIC ACID [Suspect]
     Active Substance: ZOLEDRONIC ACID
     Indication: Osteoporosis
     Route: 042
     Dates: start: 20240808, end: 20240808
  2. Zoledronic acid 5 mg IV [Concomitant]
     Dates: start: 20240808, end: 20240808

REACTIONS (10)
  - Nausea [None]
  - Muscle twitching [None]
  - Gait disturbance [None]
  - Neck pain [None]
  - Back pain [None]
  - Headache [None]
  - Vomiting [None]
  - Diplopia [None]
  - Asthenia [None]
  - Infusion related reaction [None]

NARRATIVE: CASE EVENT DATE: 20240808
